FAERS Safety Report 4489871-0 (Version None)
Quarter: 2004Q4

REPORT INFORMATION
  Report Type: 
  Country: None (occurrence: None)
  Receive Date: 20041026
  Receipt Date: 20041014
  Transmission Date: 20050328
  Serious: Yes (Disabling)
  Sender: FDA-Public Use
  Company Number: 310001M04DNK

PATIENT
  Age: 28 Year
  Sex: Female

DRUGS (4)
  1. GONAL-F [Suspect]
     Indication: INFERTILITY FEMALE
     Dosage: 75 IU, 1 IN 1 DAYS
     Dates: start: 20030923, end: 20030926
  2. BUSERELIN ACETATE [Concomitant]
  3. CHLORIOGONADOTROPIN ALFA [Concomitant]
  4. PROGESTERONE GEL (PROGESTERONE) [Concomitant]

REACTIONS (3)
  - CEREBRAL ARTERY THROMBOSIS [None]
  - DRUG EXPOSURE DURING PREGNANCY [None]
  - HEMIANOPIA HOMONYMOUS [None]
